FAERS Safety Report 4904572-X (Version None)
Quarter: 2006Q1

REPORT INFORMATION
  Report Type: 
  Country: None (occurrence: None)
  Receive Date: 20060208
  Receipt Date: 20060126
  Transmission Date: 20060701
  Serious: Yes (Other)
  Sender: FDA-Public Use
  Company Number: SE-ROCHE-433925

PATIENT
  Age: 74 Year
  Sex: Male

DRUGS (9)
  1. BONDRONAT [Suspect]
     Route: 048
     Dates: start: 20050515
  2. ZOMETA [Suspect]
     Route: 042
     Dates: start: 20050215, end: 20050515
  3. RISEDRONATE SODIUM [Suspect]
     Route: 048
     Dates: start: 20040615, end: 20050215
  4. METOPROLOL SUCCINATE [Concomitant]
  5. FRAGMIN [Concomitant]
  6. ENANTON DEPOT [Concomitant]
  7. ACETAMINOPHEN [Concomitant]
  8. ESIDRIX [Concomitant]
  9. TAXOTERE [Concomitant]
     Dosage: NO DOSE REPORTED.
     Dates: start: 20050215

REACTIONS (2)
  - DEMENTIA [None]
  - DISEASE PROGRESSION [None]
